FAERS Safety Report 23433847 (Version 1)
Quarter: 2024Q1

REPORT INFORMATION
  Report Type: Spontaneous
  Country: CN (occurrence: CN)
  Receive Date: 20240123
  Receipt Date: 20240123
  Transmission Date: 20240410
  Serious: Yes (Hospitalization, Other)
  Sender: FDA-Public Use
  Company Number: CN-HUTCHMED LIMITED-HMP2024CN00088

PATIENT
  Age: 77 Year
  Sex: Female
  Weight: 43.5 kg

DRUGS (3)
  1. FRUQUINTINIB [Suspect]
     Active Substance: FRUQUINTINIB
     Indication: Colon cancer
     Dosage: 3 MILLIGRAM, QD
     Route: 048
     Dates: start: 20231127, end: 20231218
  2. RALTITREXED [Concomitant]
     Active Substance: RALTITREXED
     Indication: Colon cancer
     Dosage: 2 MILLIGRAM, QD
     Route: 041
     Dates: start: 20231127, end: 20231127
  3. SODIUM CHLORIDE [Concomitant]
     Active Substance: SODIUM CHLORIDE
     Indication: Vehicle solution use
     Dosage: 250 MILLILITER, QD
     Route: 041
     Dates: start: 20231127, end: 20231127

REACTIONS (1)
  - Myelosuppression [Recovering/Resolving]

NARRATIVE: CASE EVENT DATE: 20240106
